FAERS Safety Report 8329343-6 (Version None)
Quarter: 2012Q2

REPORT INFORMATION
  Report Type: 
  Country: None (occurrence: None)
  Receive Date: 20120502
  Receipt Date: 20120208
  Transmission Date: 20120825
  Serious: No
  Sender: FDA-Public Use
  Company Number: US-ASTRAZENECA-2012SE08699

PATIENT
  Sex: Female

DRUGS (1)
  1. FASLODEX [Suspect]
     Indication: BREAST CANCER METASTATIC
     Route: 030

REACTIONS (5)
  - MALAISE [None]
  - LETHARGY [None]
  - ASTHENIA [None]
  - HYPERSOMNIA [None]
  - VOMITING [None]
